FAERS Safety Report 12772963 (Version 2)
Quarter: 2016Q4

REPORT INFORMATION
  Report Type: Spontaneous
  Country: US (occurrence: US)
  Receive Date: 20160922
  Receipt Date: 20161007
  Transmission Date: 20170207
  Serious: Yes (Hospitalization, Other)
  Sender: FDA-Public Use
  Company Number: US-009507513-1609USA009521

PATIENT
  Age: 69 Year
  Sex: Male
  Weight: 83.46 kg

DRUGS (1)
  1. ZEPATIER [Suspect]
     Active Substance: ELBASVIR\GRAZOPREVIR
     Indication: HEPATITIS C
     Dosage: 50MG/100MG
     Route: 048
     Dates: start: 20160802, end: 20160904

REACTIONS (7)
  - Pneumonia [Recovered/Resolved]
  - Movement disorder [Recovered/Resolved]
  - Acute kidney injury [Recovered/Resolved]
  - Lymphoma [Recovered/Resolved]
  - Adverse event [Recovered/Resolved]
  - Dehydration [Recovered/Resolved]
  - Ascites [Recovered/Resolved]

NARRATIVE: CASE EVENT DATE: 2016
